FAERS Safety Report 11064773 (Version 2)
Quarter: 2016Q1

REPORT INFORMATION
  Report Type: Report from Study
  Country: QA (occurrence: QA)
  Receive Date: 20150424
  Receipt Date: 20160223
  Transmission Date: 20160525
  Serious: Yes (Hospitalization)
  Sender: FDA-Public Use
  Company Number: QA-BIOMARINAP-QA-2015-106078

PATIENT
  Age: 12 Year
  Sex: Male
  Weight: 21 kg

DRUGS (1)
  1. BMN 110 [Suspect]
     Active Substance: ELOSULFASE ALFA
     Indication: MUCOPOLYSACCHARIDOSIS IV
     Dosage: 42 MG, QW
     Route: 042
     Dates: start: 20120815

REACTIONS (1)
  - Knee deformity [Recovered/Resolved]

NARRATIVE: CASE EVENT DATE: 20150301
